FAERS Safety Report 9817244 (Version 2)
Quarter: 2014Q2

REPORT INFORMATION
  Report Type: Report from Study
  Country: CZ (occurrence: CZ)
  Receive Date: 20140114
  Receipt Date: 20140422
  Transmission Date: 20141212
  Serious: Yes (Life-Threatening)
  Sender: FDA-Public Use
  Company Number: CZ-AMGEN-CZECT2014001926

PATIENT
  Age: 68 Year
  Sex: Female

DRUGS (17)
  1. ETANERCEPT [Suspect]
     Indication: RHEUMATOID ARTHRITIS
     Dosage: 50 MG,1 IN 1 WK
     Route: 058
     Dates: start: 20130424, end: 20131128
  2. MEDROL                             /00049601/ [Concomitant]
     Indication: RHEUMATOID ARTHRITIS
     Dosage: 4 MG, DAILY
     Route: 048
  3. METHOTREXATE [Concomitant]
     Indication: RHEUMATOID ARTHRITIS
     Dosage: 20 MG, WEEKLY
     Route: 048
     Dates: start: 20110601
  4. ACIDUM FOLICUM [Concomitant]
     Indication: RHEUMATOID ARTHRITIS
     Dosage: 10 MG, WEEKLY
     Route: 048
     Dates: start: 20110601
  5. VIGANTOL                           /00318501/ [Concomitant]
     Indication: OSTEOPENIA
     Dosage: 15 MG, WEEKLY
     Route: 048
     Dates: start: 2012
  6. INSULATARD                         /00646002/ [Concomitant]
     Indication: TYPE 2 DIABETES MELLITUS
     Dosage: 12 IU, DAILY
     Route: 058
     Dates: start: 2011
  7. NOVORAPID [Concomitant]
     Indication: TYPE 2 DIABETES MELLITUS
     Dosage: 10 IU, DAILY
     Route: 058
     Dates: start: 2011
  8. JANUVIA [Concomitant]
     Indication: TYPE 2 DIABETES MELLITUS
     Dosage: 1 DF, DAILY
     Route: 048
     Dates: start: 2011
  9. BETALOC                            /00376902/ [Concomitant]
     Indication: HYPERTENSION
     Dosage: 100 MG, 2X/DAY
     Route: 048
     Dates: start: 1998
  10. LOZAP H [Concomitant]
     Indication: HYPERTENSION
     Dosage: 1 DF, DAILY
     Route: 048
     Dates: start: 1998
  11. CYNT                               /00985301/ [Concomitant]
     Indication: HYPERTENSION
     Dosage: 0.2 MG, 2X/DAY
     Route: 048
     Dates: start: 2007
  12. ACYLPYRIN [Concomitant]
     Dosage: 50 MG, DAILY
     Route: 048
     Dates: start: 1998
  13. AGEN [Concomitant]
     Indication: HYPERTENSION
     Dosage: 5 MG, 2X/DAY
     Route: 048
     Dates: start: 1998
  14. ROSUCARD [Concomitant]
     Indication: HYPERLIPIDAEMIA
     Dosage: 10 MG, DAILY
     Route: 048
     Dates: start: 2010
  15. NEUROL                             /00595201/ [Concomitant]
     Indication: INSOMNIA
     Dosage: 0.5 MG, DAILY
     Route: 048
     Dates: start: 2001
  16. IBUPROFEN [Concomitant]
     Indication: RHEUMATOID ARTHRITIS
     Dosage: 400 MG, AS NEEDED
     Route: 048
     Dates: start: 2012
  17. LOZAP                              /01121602/ [Concomitant]
     Dosage: UNK

REACTIONS (1)
  - Breast cancer female [Recovered/Resolved with Sequelae]
